FAERS Safety Report 8277204-3 (Version None)
Quarter: 2012Q2

REPORT INFORMATION
  Report Type: 
  Country: None (occurrence: None)
  Receive Date: 20120412
  Receipt Date: 20120405
  Transmission Date: 20120825
  Serious: Yes (Hospitalization)
  Sender: FDA-Public Use
  Company Number: US-GLAXOSMITHKLINE-A0794726A

PATIENT
  Age: 64 Year
  Sex: Male
  Weight: 156.8 kg

DRUGS (7)
  1. TIAZAC [Concomitant]
  2. LISINOPRIL [Concomitant]
  3. AVANDIA [Suspect]
     Indication: TYPE 2 DIABETES MELLITUS
     Dosage: 8MG PER DAY
     Route: 048
     Dates: start: 19990101, end: 20051231
  4. GLYBURIDE [Concomitant]
  5. INSULIN [Concomitant]
  6. CATAPRES [Concomitant]
  7. ALLOPURINOL [Concomitant]

REACTIONS (4)
  - CORONARY ARTERY DISEASE [None]
  - ATRIAL FIBRILLATION [None]
  - CARDIAC FAILURE CONGESTIVE [None]
  - MYOCARDIAL INFARCTION [None]
